FAERS Safety Report 12934832 (Version 2)
Quarter: 2016Q4

REPORT INFORMATION
  Report Type: Spontaneous
  Country: US (occurrence: US)
  Receive Date: 20161112
  Receipt Date: 20161129
  Transmission Date: 20170207
  Serious: Yes (Life-Threatening, Hospitalization)
  Sender: FDA-Public Use
  Company Number: US-ROCHE-1854001

PATIENT
  Age: 71 Year
  Sex: Female
  Weight: 95.7 kg

DRUGS (1)
  1. ACTIVASE [Suspect]
     Active Substance: ALTEPLASE
     Indication: ISCHAEMIC STROKE
     Route: 042
     Dates: start: 20161030

REACTIONS (2)
  - Pulmonary oedema [Recovered/Resolved with Sequelae]
  - Acute respiratory failure [Unknown]

NARRATIVE: CASE EVENT DATE: 20161030
